FAERS Safety Report 20014351 (Version 1)
Quarter: 2021Q4

REPORT INFORMATION
  Report Type: Spontaneous
  Country: CN (occurrence: CN)
  Receive Date: 20211029
  Receipt Date: 20211029
  Transmission Date: 20220303
  Serious: Yes (Other)
  Sender: FDA-Public Use
  Company Number: CN-ROCHE-2944888

PATIENT
  Age: 50 Year
  Sex: Female

DRUGS (18)
  1. XELODA [Suspect]
     Active Substance: CAPECITABINE
     Indication: Adenocarcinoma of colon
     Route: 048
  2. ZELBORAF [Suspect]
     Active Substance: VEMURAFENIB
     Indication: Adenocarcinoma of colon
     Route: 065
     Dates: start: 20191008
  3. ZELBORAF [Suspect]
     Active Substance: VEMURAFENIB
     Route: 065
     Dates: start: 20191105
  4. ZELBORAF [Suspect]
     Active Substance: VEMURAFENIB
     Dosage: 480MG/720MG
     Route: 065
     Dates: start: 20191217
  5. OXALIPLATIN [Concomitant]
     Active Substance: OXALIPLATIN
     Indication: Adenocarcinoma of colon
     Dosage: 11-SEP-2020 TO 21-NOV-2020
  6. CETUXIMAB [Concomitant]
     Active Substance: CETUXIMAB
     Indication: Adenocarcinoma of colon
     Dosage: 08-OCT-2019 TO 17-DEC-2019, 02-JAN-2020 TO 11-JUN-2020
  7. CETUXIMAB [Concomitant]
     Active Substance: CETUXIMAB
  8. CETUXIMAB [Concomitant]
     Active Substance: CETUXIMAB
  9. IRINOTECAN [Concomitant]
     Active Substance: IRINOTECAN
     Indication: Adenocarcinoma of colon
     Dosage: 08-OCT-2019 TO 17-DEC-2019, 15-APR-2020 TO 13-MAY-2020
  10. IRINOTECAN [Concomitant]
     Active Substance: IRINOTECAN
     Dosage: 11-SEP-2020 TO 21-NOV-2020
  11. REGORAFENIB [Concomitant]
     Active Substance: REGORAFENIB
     Indication: Adenocarcinoma of colon
     Dosage: 80MG, 120MG
     Dates: start: 20200801
  12. LEUCOVORIN CALCIUM [Concomitant]
     Active Substance: LEUCOVORIN CALCIUM
     Indication: Adenocarcinoma of colon
     Dosage: 11-SEP-2020 TO 21-NOV-2020
  13. DABRAFENIB [Concomitant]
     Active Substance: DABRAFENIB
     Indication: Adenocarcinoma of colon
  14. DABRAFENIB [Concomitant]
     Active Substance: DABRAFENIB
     Dosage: 75/150MG
     Dates: start: 20210311
  15. TRAMETINIB [Concomitant]
     Active Substance: TRAMETINIB
     Indication: Adenocarcinoma of colon
  16. TRAMETINIB [Concomitant]
     Active Substance: TRAMETINIB
     Dates: start: 20210311
  17. PEMBROLIZUMAB [Concomitant]
     Active Substance: PEMBROLIZUMAB
     Indication: Adenocarcinoma of colon
  18. PEMBROLIZUMAB [Concomitant]
     Active Substance: PEMBROLIZUMAB
     Dates: start: 20210311

REACTIONS (19)
  - Hypoaesthesia [Unknown]
  - Platelet count decreased [Unknown]
  - Diarrhoea [Unknown]
  - Mouth ulceration [Unknown]
  - Hypogeusia [Unknown]
  - Arthralgia [Unknown]
  - Rash [Unknown]
  - Arthralgia [Unknown]
  - Protein urine present [Unknown]
  - Groin pain [Unknown]
  - Decreased appetite [Unknown]
  - Groin pain [Unknown]
  - Chest pain [Unknown]
  - Pyrexia [Unknown]
  - Asphyxia [Unknown]
  - Palpitations [Unknown]
  - Oedema [Unknown]
  - Off label use [Unknown]
  - Abdominal pain upper [Unknown]
